FAERS Safety Report 23552598 (Version 1)
Quarter: 2024Q1

REPORT INFORMATION
  Report Type: Spontaneous
  Country: US (occurrence: None)
  Receive Date: 20240221
  Receipt Date: 20240221
  Transmission Date: 20240410
  Serious: Yes (Other)
  Sender: FDA-Public Use
  Company Number: None

PATIENT
  Sex: Female

DRUGS (1)
  1. AMBRISENTAN [Suspect]
     Active Substance: AMBRISENTAN
     Indication: Pulmonary hypertension
     Dates: start: 20231207

REACTIONS (5)
  - Product use issue [None]
  - Heart rate decreased [None]
  - Chest pain [None]
  - Back pain [None]
  - Therapy interrupted [None]
